FAERS Safety Report 21400815 (Version 1)
Quarter: 2022Q4

REPORT INFORMATION
  Report Type: Spontaneous
  Country: CN (occurrence: None)
  Receive Date: 20221003
  Receipt Date: 20221003
  Transmission Date: 20230112
  Serious: Yes (Hospitalization)
  Sender: FDA-Public Use
  Company Number: CN-ROCHE-3189128

PATIENT
  Age: 68 Year
  Sex: Male
  Weight: 84 kg

DRUGS (8)
  1. HERCEPTIN [Suspect]
     Active Substance: TRASTUZUMAB
     Indication: Gastric cancer
     Route: 041
     Dates: start: 20220809, end: 20220809
  2. SINTILIMAB [Suspect]
     Active Substance: SINTILIMAB
     Indication: Gastric cancer
     Route: 041
     Dates: start: 20220809, end: 20220809
  3. OXALIPLATIN [Suspect]
     Active Substance: OXALIPLATIN
     Indication: Gastric cancer
     Route: 041
     Dates: start: 20220810, end: 20220810
  4. GIMERACIL [Suspect]
     Active Substance: GIMERACIL
     Indication: Gastric cancer
     Route: 048
     Dates: start: 20220810, end: 20220813
  5. OTERACIL POTASSIUM [Suspect]
     Active Substance: OTERACIL POTASSIUM
     Indication: Gastric cancer
     Route: 048
     Dates: start: 20220810, end: 20220813
  6. VALSARTAN [Concomitant]
     Active Substance: VALSARTAN
  7. METOCLOPRAMIDE [Concomitant]
     Active Substance: METOCLOPRAMIDE
  8. RAMOSETRON HYDROCHLORIDE [Concomitant]
     Active Substance: RAMOSETRON HYDROCHLORIDE

REACTIONS (1)
  - Myelosuppression [Recovering/Resolving]

NARRATIVE: CASE EVENT DATE: 20220829
